FAERS Safety Report 12484034 (Version 1)
Quarter: 2016Q2

REPORT INFORMATION
  Report Type: Spontaneous
  Country: US (occurrence: None)
  Receive Date: 20160620
  Receipt Date: 20160620
  Transmission Date: 20160815
  Serious: Yes (Hospitalization)
  Sender: FDA-Public Use
  Company Number: None

PATIENT
  Age: 69 Year
  Sex: Male
  Weight: 101.2 kg

DRUGS (8)
  1. OXYCODONE [Concomitant]
     Active Substance: OXYCODONE
  2. SENNA [Concomitant]
     Active Substance: SENNA LEAF\SENNOSIDES\SENNOSIDES A AND B
  3. ASPIRIN. [Concomitant]
     Active Substance: ASPIRIN
  4. ATORVASTATIN [Concomitant]
     Active Substance: ATORVASTATIN
  5. METOPROLOL TARTRATE. [Concomitant]
     Active Substance: METOPROLOL TARTRATE
  6. OLMESARTAN [Concomitant]
     Active Substance: OLMESARTAN
  7. ELIQUIS [Suspect]
     Active Substance: APIXABAN
     Indication: ATRIAL FIBRILLATION
     Route: 048
     Dates: start: 20160531, end: 20160606
  8. AMIODARONE [Concomitant]
     Active Substance: AMIODARONE

REACTIONS (11)
  - Dizziness [None]
  - Atrial fibrillation [None]
  - Post procedural complication [None]
  - Dyspnoea [None]
  - Fall [None]
  - Rectal haemorrhage [None]
  - Faeces discoloured [None]
  - Nausea [None]
  - Thrombosis [None]
  - Duodenal ulcer [None]
  - Syncope [None]

NARRATIVE: CASE EVENT DATE: 20160606
